FAERS Safety Report 8556291-9 (Version None)
Quarter: 2012Q3

REPORT INFORMATION
  Report Type: 
  Country: None (occurrence: None)
  Receive Date: 20120801
  Receipt Date: 20120730
  Transmission Date: 20120928
  Serious: No
  Sender: FDA-Public Use
  Company Number: US-PFIZER INC-2012184665

PATIENT

DRUGS (5)
  1. CELEBREX [Suspect]
     Dosage: 200 MG, 1X/DAY
  2. ACTOS [Concomitant]
     Dosage: UNK
  3. NORVASC [Suspect]
     Dosage: 10 MG, 1X/DAY
  4. NIASPAN [Concomitant]
     Dosage: UNK
  5. JANUMET [Concomitant]
     Dosage: UNK

REACTIONS (2)
  - NEUROPATHY PERIPHERAL [None]
  - HYPERTENSION [None]
